FAERS Safety Report 15556100 (Version 2)
Quarter: 2018Q4

REPORT INFORMATION
  Report Type: Spontaneous
  Country: HU (occurrence: HU)
  Receive Date: 20181026
  Receipt Date: 20181225
  Transmission Date: 20190205
  Serious: Yes (Hospitalization, Other)
  Sender: FDA-Public Use
  Company Number: HU-AMGEN-HUNSP2018149737

PATIENT
  Age: 19 Year
  Sex: Female

DRUGS (1)
  1. PROCORALAN [Suspect]
     Active Substance: IVABRADINE
     Indication: SUPRAVENTRICULAR TACHYCARDIA
     Dosage: 2.5 MG, BID
     Route: 048
     Dates: start: 201706, end: 20171018

REACTIONS (7)
  - Cardiovascular insufficiency [Recovered/Resolved]
  - Exposure during pregnancy [Recovered/Resolved]
  - Heart rate increased [Recovered/Resolved]
  - First trimester pregnancy [Recovered/Resolved]
  - Palpitations [Recovered/Resolved]
  - Second trimester pregnancy [Recovered/Resolved]
  - Off label use [Unknown]

NARRATIVE: CASE EVENT DATE: 201706
